FAERS Safety Report 8575339-9 (Version None)
Quarter: 2012Q3

REPORT INFORMATION
  Report Type: 
  Country: None (occurrence: None)
  Receive Date: 20120807
  Receipt Date: 20120802
  Transmission Date: 20120928
  Serious: No
  Sender: FDA-Public Use
  Company Number: US-PFIZER INC-2012189230

PATIENT
  Age: 69 Year
  Sex: Male

DRUGS (10)
  1. VOLTAREN [Concomitant]
     Dosage: UNK
  2. ATENOLOL [Concomitant]
     Dosage: UNK
  3. FLOMAX [Concomitant]
     Dosage: UNK
  4. MOBIC [Concomitant]
     Dosage: UNK
  5. ASPIRIN [Concomitant]
     Dosage: UNK
  6. SIMVASTATIN [Concomitant]
     Dosage: UNK
  7. SUTENT [Suspect]
     Indication: RENAL CANCER
     Dosage: 50 MG, DAILY
  8. FISH OIL [Concomitant]
     Dosage: UNK
  9. PREVACID [Concomitant]
     Dosage: UNK
  10. AMBIEN [Concomitant]
     Dosage: UNK

REACTIONS (1)
  - FATIGUE [None]
